FAERS Safety Report 9511551 (Version 1)
Quarter: 2013Q3

REPORT INFORMATION
  Report Type: Spontaneous
  Country: US (occurrence: None)
  Receive Date: 20130909
  Receipt Date: 20130909
  Transmission Date: 20140515
  Serious: No
  Sender: FDA-Public Use
  Company Number: None

PATIENT
  Age: 12 Year
  Sex: Female
  Weight: 83.92 kg

DRUGS (1)
  1. EPIDUO [Suspect]
     Indication: ACNE
     Dosage: APPLY ON PIMPLES; APPLIED TO A SURFACE, USUALLY THE SKIN
     Route: 061
     Dates: start: 20130905, end: 20130908

REACTIONS (4)
  - Skin irritation [None]
  - Swelling face [None]
  - Burning sensation [None]
  - Visual impairment [None]
